FAERS Safety Report 11584528 (Version 2)
Quarter: 2016Q1

REPORT INFORMATION
  Report Type: Spontaneous
  Country: AU (occurrence: AU)
  Receive Date: 20151001
  Receipt Date: 20160104
  Transmission Date: 20160525
  Serious: No
  Sender: FDA-Public Use
  Company Number: AU-AMGEN-AUSSP2015100809

PATIENT
  Age: 61 Year
  Sex: Female

DRUGS (5)
  1. DILANTIN [Concomitant]
     Active Substance: PHENYTOIN
     Indication: EPILEPSY
     Dosage: UNK
     Route: 048
     Dates: start: 1995, end: 20150507
  2. KEPPRA [Concomitant]
     Active Substance: LEVETIRACETAM
  3. TEGRETOL [Suspect]
     Active Substance: CARBAMAZEPINE
     Indication: PRODUCT USED FOR UNKNOWN INDICATION
     Route: 065
  4. KLIOGEST [Concomitant]
     Active Substance: ESTROGENS
     Route: 048
  5. PROLIA [Suspect]
     Active Substance: DENOSUMAB
     Indication: OSTEOPOROSIS
     Dosage: UNK
     Route: 058
     Dates: start: 20150407, end: 20150407

REACTIONS (1)
  - Dry mouth [Not Recovered/Not Resolved]
